FAERS Safety Report 9890517 (Version 1)
Quarter: 2014Q1

REPORT INFORMATION
  Report Type: Spontaneous
  Country: US (occurrence: None)
  Receive Date: 20140211
  Receipt Date: 20140211
  Transmission Date: 20141002
  Serious: Yes (Hospitalization)
  Sender: FDA-Public Use
  Company Number: None

PATIENT
  Age: 60 Year
  Sex: Male
  Weight: 88.9 kg

DRUGS (1)
  1. VASOPRESSIN [Suspect]
     Indication: HYPOTENSION
     Route: 042
     Dates: start: 20111010, end: 20111010

REACTIONS (2)
  - Thoracic haemorrhage [None]
  - Post procedural haemorrhage [None]
